FAERS Safety Report 5152116-2 (Version None)
Quarter: 2006Q4

REPORT INFORMATION
  Report Type: 
  Country: None (occurrence: None)
  Receive Date: 20061113
  Receipt Date: 20061113
  Transmission Date: 20070319
  Serious: Yes (Hospitalization)
  Sender: FDA-Public Use
  Company Number: None

PATIENT
  Sex: Female
  Weight: 49.5 kg

DRUGS (8)
  1. LAMICTAL [Suspect]
     Indication: CONVULSION
     Dosage: 100 MG QAM ORAL
     Route: 048
     Dates: start: 20060728, end: 20060802
  2. LAMICTAL [Suspect]
     Indication: CONVULSION
     Dosage: 200 MG QHS ORAL
     Route: 048
     Dates: start: 20060728, end: 20060802
  3. ACETAMINOPHEN [Concomitant]
  4. IBUPROFEN [Concomitant]
  5. LAMICTAL [Concomitant]
  6. LYRICA [Concomitant]
  7. PHENOBARBITAL TAB [Concomitant]
  8. RISPERDAL [Concomitant]

REACTIONS (4)
  - ALANINE AMINOTRANSFERASE INCREASED [None]
  - ASPARTATE AMINOTRANSFERASE INCREASED [None]
  - DRUG LEVEL INCREASED [None]
  - RHABDOMYOLYSIS [None]
